FAERS Safety Report 11622159 (Version 1)
Quarter: 2015Q4

REPORT INFORMATION
  Report Type: Spontaneous
  Country: US (occurrence: US)
  Receive Date: 20151013
  Receipt Date: 20151013
  Transmission Date: 20160304
  Serious: No
  Sender: FDA-Public Use
  Company Number: US-JNJFOC-20150915883

PATIENT
  Age: 94 Year
  Sex: Female
  Weight: 64.86 kg

DRUGS (1)
  1. SUDAFED [Suspect]
     Active Substance: PSEUDOEPHEDRINE HYDROCHLORIDE
     Indication: SINUSITIS
     Dosage: EVERY 4 HOURS; FOR ABOUT 4-5 DAYS
     Route: 048
     Dates: end: 20150916

REACTIONS (1)
  - Epistaxis [Recovering/Resolving]

NARRATIVE: CASE EVENT DATE: 20150917
